FAERS Safety Report 10278058 (Version 2)
Quarter: 2014Q3

REPORT INFORMATION
  Report Type: Spontaneous
  Country: JP (occurrence: JP)
  Receive Date: 20140704
  Receipt Date: 20140704
  Transmission Date: 20150326
  Serious: Yes (Hospitalization)
  Sender: FDA-Public Use
  Company Number: JP-009507513-1406JPN009893

PATIENT
  Age: 80 Year
  Sex: Female

DRUGS (1)
  1. NASONEX [Suspect]
     Active Substance: MOMETASONE FUROATE
     Indication: RHINITIS ALLERGIC
     Dosage: 50 MICROGRAM, QID (FOUR TIMES A DAY)
     Route: 045
     Dates: start: 20140609, end: 20140614

REACTIONS (3)
  - Joint swelling [Unknown]
  - Arthralgia [Unknown]
  - Erythema [Unknown]

NARRATIVE: CASE EVENT DATE: 20140613
